FAERS Safety Report 5221486-9 (Version None)
Quarter: 2007Q1

REPORT INFORMATION
  Report Type: 
  Country: None (occurrence: None)
  Receive Date: 20070126
  Receipt Date: 20070116
  Transmission Date: 20070707
  Serious: Yes (Other)
  Sender: FDA-Public Use
  Company Number: FR-PFIZER INC-2007004988

PATIENT
  Age: 44 Year
  Sex: Male
  Weight: 96 kg

DRUGS (3)
  1. LYRICA [Suspect]
     Indication: NEURALGIA
     Dates: start: 20061024, end: 20070101
  2. ISOPTIN [Concomitant]
  3. TARKA [Concomitant]

REACTIONS (6)
  - ANAEMIA [None]
  - ATRIOVENTRICULAR BLOCK [None]
  - HYPERTENSIVE CARDIOMYOPATHY [None]
  - OEDEMA PERIPHERAL [None]
  - RECTAL HAEMORRHAGE [None]
  - WEIGHT INCREASED [None]
